FAERS Safety Report 23263575 (Version 4)
Quarter: 2024Q1

REPORT INFORMATION
  Report Type: Spontaneous
  Country: US (occurrence: US)
  Receive Date: 20231205
  Receipt Date: 20240320
  Transmission Date: 20240409
  Serious: No
  Sender: FDA-Public Use
  Company Number: US-PFIZER INC-202300400481

PATIENT
  Age: 13 Year
  Sex: Male
  Weight: 30.385 kg

DRUGS (2)
  1. GENOTROPIN [Suspect]
     Active Substance: SOMATROPIN
     Indication: Short stature
     Dosage: 1.2 MG EVERY OTHER DAY AND 1.4MG EVERY OTHER DAY, ADMINISTERED IN THE BUTT
     Dates: start: 202310
  2. GENOTROPIN [Suspect]
     Active Substance: SOMATROPIN
     Indication: Growth disorder

REACTIONS (1)
  - Device breakage [Unknown]

NARRATIVE: CASE EVENT DATE: 20231101
